FAERS Safety Report 11463834 (Version 1)
Quarter: 2015Q3

REPORT INFORMATION
  Report Type: Spontaneous
  Country: US (occurrence: US)
  Receive Date: 20150831
  Receipt Date: 20150831
  Transmission Date: 20151125
  Serious: No
  Sender: FDA-Public Use
  Company Number: US-ELI_LILLY_AND_COMPANY-US201105000972

PATIENT
  Age: 45 Year
  Sex: Male

DRUGS (2)
  1. CYMBALTA [Suspect]
     Active Substance: DULOXETINE HYDROCHLORIDE
     Indication: BIPOLAR DISORDER
     Dosage: 60 MG, QD
     Dates: start: 2006
  2. LAMICTAL [Concomitant]
     Active Substance: LAMOTRIGINE
     Dosage: UNK, UNKNOWN

REACTIONS (3)
  - Blood glucose increased [Not Recovered/Not Resolved]
  - Glycosylated haemoglobin increased [Not Recovered/Not Resolved]
  - Off label use [Not Recovered/Not Resolved]

NARRATIVE: CASE EVENT DATE: 2006
